FAERS Safety Report 6075886-8 (Version None)
Quarter: 2009Q1

REPORT INFORMATION
  Report Type: 
  Country: None (occurrence: None)
  Receive Date: 20090212
  Receipt Date: 20090209
  Transmission Date: 20090719
  Serious: Yes (Hospitalization)
  Sender: FDA-Public Use
  Company Number: FR-AVENTIS-200910461FR

PATIENT
  Age: 81 Year
  Sex: Female

DRUGS (5)
  1. ARAVA [Suspect]
     Indication: RHEUMATOID ARTHRITIS
     Route: 048
     Dates: start: 20070101
  2. TRAMADOL HCL [Concomitant]
     Indication: PAIN
     Route: 048
     Dates: end: 20081114
  3. CORTANCYL [Concomitant]
     Indication: RHEUMATOID ARTHRITIS
     Route: 048
  4. IRBESARTAN [Concomitant]
     Route: 048
  5. DAFALGAN                           /00020001/ [Concomitant]
     Indication: PAIN
     Route: 048

REACTIONS (7)
  - DIARRHOEA [None]
  - FALL [None]
  - GASTROENTERITIS [None]
  - INFLAMMATION [None]
  - NAUSEA [None]
  - PYREXIA [None]
  - SYNCOPE [None]
